FAERS Safety Report 25817585 (Version 1)
Quarter: 2025Q3

REPORT INFORMATION
  Report Type: Spontaneous
  Country: TH (occurrence: TH)
  Receive Date: 20250918
  Receipt Date: 20250918
  Transmission Date: 20251020
  Serious: Yes (Other)
  Sender: MERCK SHARP & DOHME LLC
  Company Number: TH-009507513-2320626

PATIENT
  Age: 72 Year
  Sex: Male

DRUGS (2)
  1. KEYTRUDA [Suspect]
     Active Substance: PEMBROLIZUMAB
     Indication: Non-small cell lung cancer
     Route: 042
     Dates: start: 20250722, end: 20250722
  2. KEYTRUDA [Suspect]
     Active Substance: PEMBROLIZUMAB
     Indication: Non-small cell lung cancer
     Route: 042
     Dates: start: 20250814, end: 20250814

REACTIONS (7)
  - Brain oedema [Not Recovered/Not Resolved]
  - Vomiting [Recovering/Resolving]
  - Inappropriate schedule of product administration [Unknown]
  - Dizziness [Recovering/Resolving]
  - Gait inability [Unknown]
  - Germ cell cancer metastatic [Not Recovered/Not Resolved]
  - Intracranial germ cell tumour [Not Recovered/Not Resolved]

NARRATIVE: CASE EVENT DATE: 20250101
